FAERS Safety Report 14504492 (Version 1)
Quarter: 2018Q1

REPORT INFORMATION
  Report Type: Spontaneous
  Country: US (occurrence: US)
  Receive Date: 20180208
  Receipt Date: 20180208
  Transmission Date: 20180509
  Serious: No
  Sender: FDA-Public Use
  Company Number: US-JNJFOC-20171230449

PATIENT
  Sex: Male
  Weight: 90.72 kg

DRUGS (1)
  1. TYLENOL EXTRA STRENGTH [Suspect]
     Active Substance: ACETAMINOPHEN
     Indication: LIGAMENT SPRAIN
     Dosage: TOTALING 4 PILLS IN THE MORNING AND NIGHT
     Route: 065
     Dates: end: 20171220

REACTIONS (1)
  - Product use in unapproved indication [Unknown]
